FAERS Safety Report 7409701-4 (Version None)
Quarter: 2011Q2

REPORT INFORMATION
  Report Type: 
  Country: None (occurrence: None)
  Receive Date: 20110412
  Receipt Date: 20110401
  Transmission Date: 20111010
  Serious: Yes (Other)
  Sender: FDA-Public Use
  Company Number: US-MILLENNIUM PHARMACEUTICALS, INC.-2011-01398

PATIENT

DRUGS (4)
  1. VELCADE [Suspect]
     Indication: NEOPLASM
     Dosage: 1.3 MG/M2, CYCLIC
     Route: 040
  2. FLAVOPIRIDOL [Suspect]
     Indication: NEOPLASM
     Dosage: 30 UNK, CYCLIC
     Route: 040
  3. ACYCLOVIR [Concomitant]
     Indication: PROPHYLAXIS
  4. DEXAMETHASONE [Concomitant]
     Indication: CYTOKINE RELEASE SYNDROME
     Dosage: 20 MG, CYCLIC

REACTIONS (1)
  - CYTOKINE RELEASE SYNDROME [None]
